FAERS Safety Report 10504255 (Version 11)
Quarter: 2015Q4

REPORT INFORMATION
  Report Type: Report from Study
  Country: ID (occurrence: ID)
  Receive Date: 20141008
  Receipt Date: 20151224
  Transmission Date: 20160304
  Serious: Yes (Hospitalization, Other)
  Sender: FDA-Public Use
  Company Number: ID-ROCHE-1464217

PATIENT
  Age: 70 Year
  Sex: Female

DRUGS (2)
  1. COPEGUS [Suspect]
     Active Substance: RIBAVIRIN
     Indication: CHRONIC HEPATITIS C
     Dosage: TEMPORARILY ITNERRUPTED
     Route: 065
  2. PEGASYS [Suspect]
     Active Substance: PEGINTERFERON ALFA-2A
     Indication: CHRONIC HEPATITIS C
     Dosage: TEMPORARILY ITNERRUPTED ON UNSPECIFIED DATE
     Route: 065
     Dates: start: 20140826, end: 20141231

REACTIONS (7)
  - Anaemia [Not Recovered/Not Resolved]
  - Leukopenia [Unknown]
  - General physical health deterioration [Unknown]
  - Decreased appetite [Unknown]
  - Thrombocytopenia [Not Recovered/Not Resolved]
  - Gastric disorder [Unknown]
  - Asthenia [Unknown]
